FAERS Safety Report 6899948-8 (Version None)
Quarter: 2010Q3

REPORT INFORMATION
  Report Type: 
  Country: None (occurrence: None)
  Receive Date: 20100803
  Receipt Date: 20100728
  Transmission Date: 20110219
  Serious: Yes (Hospitalization)
  Sender: FDA-Public Use
  Company Number: FR-BRISTOL-MYERS SQUIBB COMPANY-15215213

PATIENT
  Age: 59 Year
  Sex: Female

DRUGS (3)
  1. CISPLATIN [Suspect]
     Indication: NON-SMALL CELL LUNG CANCER
     Dosage: DAY 1 EVERY 21 DAYS.
     Route: 042
     Dates: start: 20091021, end: 20091222
  2. ALIMTA [Suspect]
     Indication: NON-SMALL CELL LUNG CANCER
     Dosage: DAY 1 EVERY 21 DAYS.
     Route: 042
     Dates: start: 20091021, end: 20091222
  3. ALIMTA [Suspect]
     Indication: NON-SMALL CELL LUNG CANCER
     Dosage: DAY 1 EVERY 21 DAYS.
     Route: 042
     Dates: start: 20100113, end: 20100520

REACTIONS (1)
  - PERICARDITIS [None]
